FAERS Safety Report 9155931 (Version 1)
Quarter: 2013Q1

REPORT INFORMATION
  Report Type: Spontaneous
  Country: US (occurrence: US)
  Receive Date: 20130311
  Receipt Date: 20130311
  Transmission Date: 20140127
  Serious: Yes (Other)
  Sender: FDA-Public Use
  Company Number: US-BAYER-2013-028905

PATIENT
  Age: 70 Year
  Sex: Female
  Weight: 66.67 kg

DRUGS (20)
  1. ALEVE SMOOTH GELS [Suspect]
     Dosage: 2 TIMES A MONTH
     Route: 048
  2. METAMUCIL [Concomitant]
  3. RISPERIDONE [Concomitant]
  4. WELLBUTRIN [Concomitant]
  5. NIACIN [Concomitant]
  6. OMEPRAZOLE [Concomitant]
  7. BIOTIN [Concomitant]
  8. MELATONIN [Concomitant]
  9. ZETIA [Concomitant]
  10. BETA CAROTEN [Concomitant]
  11. VITAMIN D [Concomitant]
  12. VITAMIN E [Concomitant]
  13. VITAMIN C [Concomitant]
  14. SELENIUM [Concomitant]
  15. ACIDOPHILUS [Concomitant]
  16. TRAZODONE [Concomitant]
  17. LEVOTHYROXINE [Concomitant]
  18. LORATADINE [Concomitant]
  19. OSTEO [Concomitant]
  20. CALCIUM [Concomitant]

REACTIONS (1)
  - Faeces discoloured [None]
